FAERS Safety Report 13075544 (Version 2)
Quarter: 2017Q1

REPORT INFORMATION
  Report Type: Spontaneous
  Country: JP (occurrence: JP)
  Receive Date: 20161230
  Receipt Date: 20170113
  Transmission Date: 20170428
  Serious: Yes (Death)
  Sender: FDA-Public Use
  Company Number: JP-CELGENEUS-JPN-2016126787

PATIENT
  Age: 69 Year
  Sex: Male
  Weight: 72 kg

DRUGS (9)
  1. SITAGLIPTIN PHOSPHATE HYDRATE [Concomitant]
     Active Substance: SITAGLIPTIN PHOSPHATE
     Indication: DIABETES MELLITUS
     Dosage: 50 MILLIGRAM
     Route: 048
  2. ABRAXANE [Suspect]
     Active Substance: PACLITAXEL
     Indication: NON-SMALL CELL LUNG CANCER
     Dosage: 195 MILLIGRAM
     Route: 041
     Dates: start: 20140709, end: 20140912
  3. ESOMEPRAZOLE MAGNESIUM HYDRATE [Concomitant]
     Indication: GASTRITIS
     Dosage: 50 MILLIGRAM
     Route: 048
     Dates: start: 20140714, end: 20141021
  4. HALOPERIDOL. [Concomitant]
     Active Substance: HALOPERIDOL
     Indication: PRODUCT USED FOR UNKNOWN INDICATION
     Route: 065
     Dates: start: 20141027
  5. CARBOPLATIN. [Suspect]
     Active Substance: CARBOPLATIN
     Indication: NON-SMALL CELL LUNG CANCER
     Dosage: 876 MILLIGRAM
     Route: 065
     Dates: start: 20140709, end: 20140912
  6. METFORMIN HCL [Concomitant]
     Active Substance: METFORMIN HYDROCHLORIDE
     Indication: DIABETES MELLITUS
     Dosage: 1000 MILLIGRAM
     Route: 048
  7. REBAMIPIDE [Concomitant]
     Active Substance: REBAMIPIDE
     Indication: GASTRITIS
     Dosage: 50 MILLIGRAM
     Route: 048
  8. MIDAZOLAM [Concomitant]
     Active Substance: MIDAZOLAM HYDROCHLORIDE
     Indication: PRODUCT USED FOR UNKNOWN INDICATION
     Route: 065
     Dates: start: 20141027
  9. BETAMETHASONE. [Concomitant]
     Active Substance: BETAMETHASONE
     Indication: NON-SMALL CELL LUNG CANCER
     Dosage: 50 MILLIGRAM
     Route: 048
     Dates: start: 20140806, end: 20141017

REACTIONS (1)
  - Interstitial lung disease [Fatal]

NARRATIVE: CASE EVENT DATE: 20141017
